FAERS Safety Report 18066382 (Version 2)
Quarter: 2020Q3

REPORT INFORMATION
  Report Type: Spontaneous
  Country: AU (occurrence: AU)
  Receive Date: 20200724
  Receipt Date: 20200811
  Transmission Date: 20201103
  Serious: Yes (Other)
  Sender: FDA-Public Use
  Company Number: AU-UCBSA-2020028742

PATIENT
  Age: 66 Year
  Sex: Male

DRUGS (14)
  1. APOMINE [Suspect]
     Active Substance: APOMORPHINE HYDROCHLORIDE
     Indication: PARKINSON^S DISEASE
     Dosage: 6.5 MG
     Route: 058
  2. OXAZEPAM. [Concomitant]
     Active Substance: OXAZEPAM
     Indication: PRODUCT USED FOR UNKNOWN INDICATION
  3. ESCITALOPRAM [Concomitant]
     Active Substance: ESCITALOPRAM OXALATE
     Indication: PRODUCT USED FOR UNKNOWN INDICATION
  4. MADOPAR [Suspect]
     Active Substance: BENSERAZIDE HYDROCHLORIDE\LEVODOPA
     Dosage: DOSE: 1.25 DOSE UNSPECIFIED
  5. VENLAFAXINE [Concomitant]
     Active Substance: VENLAFAXINE HYDROCHLORIDE
     Indication: PRODUCT USED FOR UNKNOWN INDICATION
  6. NEUPRO [Suspect]
     Active Substance: ROTIGOTINE
     Indication: PARKINSON^S DISEASE
     Dosage: DOSE: 8 MILLIGRAM , INTERVAL: 1 DAY
  7. NEUPRO [Suspect]
     Active Substance: ROTIGOTINE
     Dosage: DOSE: 12 MILLIGRAM , INTERVAL: 1 DAY
  8. MOVAPO [Suspect]
     Active Substance: APOMORPHINE HYDROCHLORIDE
     Indication: PARKINSON^S DISEASE
     Dosage: UNK
     Route: 058
  9. QUETIAPINE [QUETIAPINE FUMARATE] [Concomitant]
     Active Substance: QUETIAPINE FUMARATE
     Indication: PRODUCT USED FOR UNKNOWN INDICATION
  10. PARACETAMOL [Concomitant]
     Active Substance: ACETAMINOPHEN
     Indication: PRODUCT USED FOR UNKNOWN INDICATION
  11. APOMINE [Suspect]
     Active Substance: APOMORPHINE HYDROCHLORIDE
     Dosage: 0.5 MG
     Route: 058
  12. MIRTAZAPINE. [Concomitant]
     Active Substance: MIRTAZAPINE
     Indication: PRODUCT USED FOR UNKNOWN INDICATION
  13. LYRICA [Concomitant]
     Active Substance: PREGABALIN
     Indication: PRODUCT USED FOR UNKNOWN INDICATION
  14. MADOPAR [Suspect]
     Active Substance: BENSERAZIDE HYDROCHLORIDE\LEVODOPA
     Indication: PARKINSON^S DISEASE
     Dosage: UNK

REACTIONS (10)
  - Disorientation [Unknown]
  - Overweight [Unknown]
  - Constipation [Unknown]
  - Toxicity to various agents [Unknown]
  - Torticollis [Not Recovered/Not Resolved]
  - Nocturia [Unknown]
  - Micturition urgency [Unknown]
  - Confusional state [Unknown]
  - Posture abnormal [Unknown]
  - Parkinson^s disease [Unknown]
